FAERS Safety Report 5746402-2 (Version None)
Quarter: 2008Q2

REPORT INFORMATION
  Report Type: 
  Country: None (occurrence: None)
  Receive Date: 20080522
  Receipt Date: 20080513
  Transmission Date: 20081010
  Serious: Yes (Disabling)
  Sender: FDA-Public Use
  Company Number: IT-WATSON-2008-02343

PATIENT
  Age: 47 Year
  Sex: Female

DRUGS (2)
  1. TRELSTAR DEPOT (WITH CLIP'N'JECT) (WATSON LABORATORIES) [Suspect]
     Indication: BREAST CANCER
     Dosage: 3.75 MG, NOT REPORTED
     Route: 030
     Dates: start: 20060317, end: 20080317
  2. TAMOXIFEN CITRATE [Suspect]
     Indication: BREAST CANCER
     Dosage: 20 MG, UNK
     Route: 048
     Dates: start: 20060303, end: 20080326

REACTIONS (1)
  - DYSPAREUNIA [None]
